FAERS Safety Report 16625704 (Version 4)
Quarter: 2019Q3

REPORT INFORMATION
  Report Type: Spontaneous
  Country: JP (occurrence: JP)
  Receive Date: 20190724
  Receipt Date: 20190910
  Transmission Date: 20191004
  Serious: Yes (Death, Other)
  Sender: FDA-Public Use
  Company Number: JP-CELGENEUS-JPN-20190707478

PATIENT
  Age: 63 Year
  Sex: Male
  Weight: 58.2 kg

DRUGS (4)
  1. GEMCITABINE. [Suspect]
     Active Substance: GEMCITABINE
     Dosage: 1300 MILLIGRAM
     Route: 041
     Dates: start: 20170816, end: 20170816
  2. GEMCITABINE. [Suspect]
     Active Substance: GEMCITABINE
     Indication: PANCREATIC CARCINOMA
     Dosage: 1600 MG/WEEK
     Route: 041
     Dates: start: 20170628, end: 20170802
  3. ABRAXANE [Suspect]
     Active Substance: PACLITAXEL
     Indication: PANCREATIC CARCINOMA
     Dosage: 200 MILLIGRAM
     Route: 041
     Dates: start: 20170628, end: 20170802
  4. ABRAXANE [Suspect]
     Active Substance: PACLITAXEL
     Dosage: 160 MILLIGRAM
     Route: 041
     Dates: start: 20170816, end: 20170816

REACTIONS (8)
  - Paronychia [Recovered/Resolved]
  - Pruritus [Recovered/Resolved]
  - Stomatitis [Recovering/Resolving]
  - Cellulitis [Unknown]
  - Onycholysis [Not Recovered/Not Resolved]
  - Onycholysis [Unknown]
  - Nail discolouration [Unknown]
  - Death [Fatal]

NARRATIVE: CASE EVENT DATE: 20170709
